FAERS Safety Report 9126071 (Version 1)
Quarter: 2013Q1

REPORT INFORMATION
  Report Type: Spontaneous
  Country: JP (occurrence: JP)
  Receive Date: 20130117
  Receipt Date: 20130117
  Transmission Date: 20140127
  Serious: Yes (Other)
  Sender: FDA-Public Use
  Company Number: JP-ASTELLAS-2013JP000264

PATIENT
  Age: 60 Year
  Sex: Female

DRUGS (5)
  1. PROGRAF [Suspect]
     Indication: PROPHYLAXIS AGAINST GRAFT VERSUS HOST DISEASE
     Dosage: UNK
     Route: 041
  2. FLUDARABINE [Concomitant]
     Indication: STEM CELL TRANSPLANT
     Dosage: UNK
     Route: 065
  3. BUSULFAN [Concomitant]
     Indication: STEM CELL TRANSPLANT
     Dosage: UNK
     Route: 048
  4. METHOTREXATE [Concomitant]
     Indication: PROPHYLAXIS AGAINST GRAFT VERSUS HOST DISEASE
     Dosage: UNK
     Route: 041
  5. G-CSF [Concomitant]
     Route: 065

REACTIONS (3)
  - Drug ineffective [Unknown]
  - Acute graft versus host disease [Unknown]
  - Chronic graft versus host disease [Unknown]
